FAERS Safety Report 7626135-8 (Version None)
Quarter: 2011Q3

REPORT INFORMATION
  Report Type: 
  Country: None (occurrence: None)
  Receive Date: 20110721
  Receipt Date: 20110713
  Transmission Date: 20111222
  Serious: Yes (Hospitalization)
  Sender: FDA-Public Use
  Company Number: IT-EISAI INC-E3810-04810-SPO-IT

PATIENT
  Sex: Female

DRUGS (4)
  1. RABEPRAZOLE SODIUM [Suspect]
     Indication: GASTROOESOPHAGEAL REFLUX DISEASE
     Route: 048
     Dates: start: 20110603, end: 20110603
  2. LEVOTHYROXINE SODIUM [Concomitant]
  3. LETROZOLE [Concomitant]
  4. ZESTORETIC [Concomitant]

REACTIONS (2)
  - CHOKING SENSATION [None]
  - PRURITUS GENERALISED [None]
